FAERS Safety Report 20456640 (Version 1)
Quarter: 2022Q1

REPORT INFORMATION
  Report Type: Spontaneous
  Country: AU (occurrence: AU)
  Receive Date: 20220210
  Receipt Date: 20220210
  Transmission Date: 20220423
  Serious: Yes (Hospitalization)
  Sender: FDA-Public Use
  Company Number: AU-TAKEDA-2022TUS008319

PATIENT
  Age: 13 Year
  Sex: Female

DRUGS (2)
  1. VYVANSE [Suspect]
     Active Substance: LISDEXAMFETAMINE DIMESYLATE
     Indication: Attention deficit hyperactivity disorder
     Dosage: 40 MILLIGRAM
     Route: 065
  2. PFIZER-BIONTECH COVID-19 VACCINE [Suspect]
     Active Substance: TOZINAMERAN
     Indication: Product used for unknown indication
     Dosage: UNK
     Route: 065
     Dates: start: 20210926

REACTIONS (10)
  - Abdominal pain upper [Not Recovered/Not Resolved]
  - Communication disorder [Not Recovered/Not Resolved]
  - Feeling cold [Recovering/Resolving]
  - Headache [Not Recovered/Not Resolved]
  - Heart rate increased [Unknown]
  - Nausea [Recovered/Resolved]
  - Pain [Unknown]
  - Syncope [Not Recovered/Not Resolved]
  - Tremor [Unknown]
  - Visual impairment [Not Recovered/Not Resolved]

NARRATIVE: CASE EVENT DATE: 20210926
